FAERS Safety Report 10719570 (Version 1)
Quarter: 2015Q1

REPORT INFORMATION
  Report Type: Spontaneous
  Country: US (occurrence: US)
  Receive Date: 20150119
  Receipt Date: 20150119
  Transmission Date: 20150721
  Serious: No
  Sender: FDA-Public Use
  Company Number: US-UNITED THERAPEUTICS-UNT-2014-004449

PATIENT
  Sex: Female
  Weight: 57.6 kg

DRUGS (2)
  1. OPSUMIT [Concomitant]
     Active Substance: MACITENTAN
     Indication: PRODUCT USED FOR UNKNOWN INDICATION
  2. TYVASO [Suspect]
     Active Substance: TREPROSTINIL
     Indication: COR PULMONALE CHRONIC
     Dosage: 18-72 MICROGRAMS, QID
     Dates: start: 20140113

REACTIONS (3)
  - Dyspnoea [Unknown]
  - Throat irritation [Unknown]
  - Device issue [Unknown]

NARRATIVE: CASE EVENT DATE: 2014
